FAERS Safety Report 14398669 (Version 2)
Quarter: 2018Q2

REPORT INFORMATION
  Report Type: Spontaneous
  Country: US (occurrence: US)
  Receive Date: 20180117
  Receipt Date: 20180423
  Transmission Date: 20180711
  Serious: Yes (Hospitalization)
  Sender: FDA-Public Use
  Company Number: US-ASTRAZENECA-2018SE04263

PATIENT
  Age: 54 Day
  Sex: Male

DRUGS (1)
  1. SYNAGIS [Suspect]
     Active Substance: PALIVIZUMAB
     Dosage: 100.0MG/ML UNKNOWN
     Route: 030

REACTIONS (1)
  - Corona virus infection [Unknown]

NARRATIVE: CASE EVENT DATE: 20171230
